FAERS Safety Report 9096284 (Version 4)
Quarter: 2013Q3

REPORT INFORMATION
  Report Type: Report from Study
  Country: CA (occurrence: CA)
  Receive Date: 20130207
  Receipt Date: 20130711
  Transmission Date: 20140515
  Serious: Yes (Hospitalization, Other)
  Sender: FDA-Public Use
  Company Number: CA-ROCHE-1187940

PATIENT
  Age: 84 Year
  Sex: Female
  Weight: 63 kg

DRUGS (11)
  1. ACTEMRA [Suspect]
     Indication: RHEUMATOID ARTHRITIS
     Route: 042
     Dates: start: 20120717, end: 20121203
  2. PLAQUENIL [Concomitant]
     Route: 065
  3. LEUCOVORIN [Concomitant]
     Route: 065
  4. FOLATE [Concomitant]
  5. LIPITOR [Concomitant]
     Route: 065
  6. HYDROCHLOROTHIAZIDE [Concomitant]
     Route: 065
  7. AMLODIPINE [Concomitant]
  8. COZAAR [Concomitant]
  9. SOFLAX (CANADA) [Concomitant]
  10. VITAMIN C [Concomitant]
  11. METHOTREXATE [Concomitant]
     Route: 065

REACTIONS (5)
  - Intervertebral disc protrusion [Unknown]
  - Back pain [Unknown]
  - Spinal fracture [Not Recovered/Not Resolved]
  - Spinal compression fracture [Recovering/Resolving]
  - Arthropathy [Unknown]
